FAERS Safety Report 4491827-9 (Version None)
Quarter: 2004Q4

REPORT INFORMATION
  Report Type: 
  Country: None (occurrence: None)
  Receive Date: 20041101
  Receipt Date: 20041018
  Transmission Date: 20050328
  Serious: Yes (Other)
  Sender: FDA-Public Use
  Company Number: 175817

PATIENT
  Age: 53 Year
  Sex: Female

DRUGS (8)
  1. AVONEX [Suspect]
     Indication: MULTIPLE SCLEROSIS
     Dosage: 30 MCG QW IM
     Route: 030
  2. AVALIDE [Concomitant]
  3. BEXTRA [Concomitant]
  4. SERZONE [Concomitant]
  5. NEURONTIN [Concomitant]
  6. BACLOFEN [Concomitant]
  7. ASPIRIN [Concomitant]
  8. PEPCID [Concomitant]

REACTIONS (11)
  - AMNESIA [None]
  - ARTHRITIS [None]
  - COLITIS [None]
  - COLON CANCER STAGE IV [None]
  - CONDITION AGGRAVATED [None]
  - DIZZINESS [None]
  - MALAISE [None]
  - METASTASES TO LYMPH NODES [None]
  - MULTIPLE SCLEROSIS [None]
  - STRESS SYMPTOMS [None]
  - SUICIDAL IDEATION [None]
